FAERS Safety Report 10258393 (Version 2)
Quarter: 2014Q3

REPORT INFORMATION
  Report Type: Spontaneous
  Country: IT (occurrence: IT)
  Receive Date: 20140625
  Receipt Date: 20140716
  Transmission Date: 20150326
  Serious: Yes (Death)
  Sender: FDA-Public Use
  Company Number: IT-WATSON-2014-13424

PATIENT
  Age: 77 Year
  Sex: Female

DRUGS (12)
  1. CARDIRENE [Concomitant]
     Active Substance: ASPIRIN DL-LYSINE
     Indication: PRODUCT USED FOR UNKNOWN INDICATION
     Dosage: 1 DF, DAILY
     Route: 065
  2. METFORMIN (UNKNOWN) [Suspect]
     Active Substance: METFORMIN HYDROCHLORIDE
     Indication: TYPE 2 DIABETES MELLITUS
     Dosage: 1000 MG, BID
     Route: 048
  3. TICLOPIDINE [Concomitant]
     Active Substance: TICLOPIDINE
     Indication: ANAEMIA
     Dosage: UNK
     Route: 065
  4. SEQUACOR [Concomitant]
     Active Substance: BISOPROLOL
     Indication: PRODUCT USED FOR UNKNOWN INDICATION
     Dosage: 1 DF, DAILY
     Route: 065
  5. LANSOX [Concomitant]
     Active Substance: LANSOPRAZOLE
     Indication: PRODUCT USED FOR UNKNOWN INDICATION
     Dosage: 1 DF, DAILY
     Route: 065
  6. SIMVACOR [Concomitant]
     Active Substance: SIMVASTATIN
     Indication: PRODUCT USED FOR UNKNOWN INDICATION
     Dosage: UNK
     Route: 065
  7. CARDIOASPIRIN [Concomitant]
     Active Substance: ASPIRIN
     Indication: PRODUCT USED FOR UNKNOWN INDICATION
     Dosage: 1 DF, DAILY
     Route: 065
  8. LASIX [Concomitant]
     Active Substance: FUROSEMIDE
     Indication: PRODUCT USED FOR UNKNOWN INDICATION
     Dosage: 1 DF, DAILY
     Route: 065
  9. ALLOPURINOL                        /00003302/ [Concomitant]
     Indication: BILIARY COLIC
     Dosage: 1 DF, DAILY
     Route: 065
  10. CORDARONE [Concomitant]
     Active Substance: AMIODARONE HYDROCHLORIDE
     Indication: PRODUCT USED FOR UNKNOWN INDICATION
     Dosage: UNK
     Route: 065
  11. LEVOPRAID                          /00314301/ [Concomitant]
     Indication: NAUSEA
  12. URSOBIL [Concomitant]
     Indication: BILIARY COLIC
     Dosage: 1 DF, DAILY

REACTIONS (12)
  - Electrocardiogram QT shortened [Fatal]
  - Cardiac arrest [Fatal]
  - Lactic acidosis [Fatal]
  - Akinesia [Fatal]
  - Acute myocardial infarction [Fatal]
  - Acute coronary syndrome [Fatal]
  - Device infusion issue [Fatal]
  - Renal failure acute [Fatal]
  - Myocardial necrosis [Fatal]
  - Bradycardia [Fatal]
  - Subendocardial ischaemia [Fatal]
  - Acute respiratory failure [Fatal]

NARRATIVE: CASE EVENT DATE: 20140606
